FAERS Safety Report 6756976-0 (Version None)
Quarter: 2010Q2

REPORT INFORMATION
  Report Type: 
  Country: None (occurrence: None)
  Receive Date: 20100603
  Receipt Date: 20100603
  Transmission Date: 20101027
  Serious: Yes (Hospitalization)
  Sender: FDA-Public Use
  Company Number: None

PATIENT
  Age: 49 Year
  Sex: Female
  Weight: 107.5025 kg

DRUGS (2)
  1. OXCARBAZEPINE [Suspect]
     Indication: AFFECTIVE DISORDER
     Dosage: 900 MG BID PO
     Route: 048
     Dates: start: 20100127, end: 20100331
  2. PERPHENAZINE [Suspect]
     Indication: PSYCHOTIC DISORDER
     Dosage: 4 MG BID PO
     Route: 048
     Dates: start: 20100305, end: 20100331

REACTIONS (7)
  - ASTHENIA [None]
  - DEHYDRATION [None]
  - FLUID INTAKE REDUCED [None]
  - HYPOTENSION [None]
  - HYPOTHERMIA [None]
  - PANCYTOPENIA [None]
  - URINARY RETENTION [None]
